APPROVED DRUG PRODUCT: MAZANOR
Active Ingredient: MAZINDOL
Strength: 2MG
Dosage Form/Route: TABLET;ORAL
Application: N017980 | Product #001
Applicant: WYETH AYERST LABORATORIES
Approved: Approved Prior to Jan 1, 1982 | RLD: No | RS: No | Type: DISCN